FAERS Safety Report 18469453 (Version 1)
Quarter: 2020Q4

REPORT INFORMATION
  Report Type: Spontaneous
  Country: TH (occurrence: TH)
  Receive Date: 20201105
  Receipt Date: 20201105
  Transmission Date: 20210114
  Serious: Yes (Other)
  Sender: FDA-Public Use
  Company Number: NVSC2020TH297087

PATIENT
  Age: 30 Year
  Sex: Male

DRUGS (1)
  1. AMOXICILLIN SODIUM,POTASSIUM CLAVULANATE [Suspect]
     Active Substance: AMOXICILLIN\CLAVULANATE POTASSIUM
     Indication: ACNE
     Dosage: (875/125 MG PER TAB), BID
     Route: 065

REACTIONS (2)
  - Product use in unapproved indication [Unknown]
  - Oesophageal ulcer [Recovering/Resolving]
